FAERS Safety Report 8637120 (Version 4)
Quarter: 2014Q4

REPORT INFORMATION
  Report Type: Spontaneous
  Country: US (occurrence: US)
  Receive Date: 20120627
  Receipt Date: 20141021
  Transmission Date: 20150529
  Serious: Yes (Other)
  Sender: FDA-Public Use
  Company Number: US-ASTRAZENECA-2012SE35626

PATIENT
  Age: 54 Year
  Sex: Male
  Weight: 63.5 kg

DRUGS (30)
  1. HYDROCODONE [Concomitant]
     Active Substance: HYDROCODONE
  2. LORATADINE. [Concomitant]
     Active Substance: LORATADINE
     Dates: start: 20050330
  3. NABUMETONE. [Concomitant]
     Active Substance: NABUMETONE
  4. CILOSTAZOL. [Concomitant]
     Active Substance: CILOSTAZOL
  5. RANITIDINE [Concomitant]
     Active Substance: RANITIDINE\RANITIDINE HYDROCHLORIDE
  6. PREDIZONE [Concomitant]
  7. NAPROXEN. [Concomitant]
     Active Substance: NAPROXEN
     Route: 048
     Dates: start: 20130403
  8. CALCIUM 600D [Concomitant]
     Dates: start: 20120529
  9. ADVAIR HFA [Concomitant]
     Active Substance: FLUTICASONE PROPIONATE\SALMETEROL XINAFOATE
     Dates: start: 20071107
  10. MELOXICAM. [Concomitant]
     Active Substance: MELOXICAM
     Dates: start: 20090721
  11. PRILOSEC [Suspect]
     Active Substance: OMEPRAZOLE MAGNESIUM
     Route: 048
     Dates: start: 20050330
  12. NEXIUM [Suspect]
     Active Substance: ESOMEPRAZOLE MAGNESIUM
     Indication: GASTROOESOPHAGEAL REFLUX DISEASE
     Route: 048
     Dates: start: 200802, end: 201110
  13. CRESTOR [Concomitant]
     Active Substance: ROSUVASTATIN CALCIUM
  14. BIAXIN [Concomitant]
     Active Substance: CLARITHROMYCIN
     Dates: start: 20050714
  15. SYMBICORT [Concomitant]
     Active Substance: BUDESONIDE\FORMOTEROL FUMARATE DIHYDRATE
  16. SKELAXIN [Concomitant]
     Active Substance: METAXALONE
     Dates: start: 20080820
  17. PRILOSEC [Suspect]
     Active Substance: OMEPRAZOLE MAGNESIUM
     Dosage: OVER THE COUNTER
     Route: 048
     Dates: start: 20050727
  18. PREDIZONE [Concomitant]
     Route: 048
     Dates: start: 20051006
  19. AMITRIPTYLINE HCL [Concomitant]
     Active Substance: AMITRIPTYLINE
  20. CYCLOBENZAPRINE [Concomitant]
     Active Substance: CYCLOBENZAPRINE
  21. ASPIRIN. [Concomitant]
     Active Substance: ASPIRIN
     Route: 048
     Dates: start: 20130403
  22. CEPHALEXIN. [Concomitant]
     Active Substance: CEPHALEXIN
     Dates: start: 20060211
  23. METHYLPREDNISOLONE. [Concomitant]
     Active Substance: METHYLPREDNISOLONE
     Dates: start: 20090909
  24. CHANTIX [Concomitant]
     Active Substance: VARENICLINE TARTRATE
     Dates: start: 20110405
  25. NEXIUM [Suspect]
     Active Substance: ESOMEPRAZOLE MAGNESIUM
     Indication: GASTROOESOPHAGEAL REFLUX DISEASE
     Route: 048
     Dates: start: 20080327
  26. NEXIUM [Suspect]
     Active Substance: ESOMEPRAZOLE MAGNESIUM
     Indication: GASTROOESOPHAGEAL REFLUX DISEASE
     Route: 048
     Dates: start: 20100707
  27. LISINOPRIL. [Concomitant]
     Active Substance: LISINOPRIL
  28. ALPRAZOLAM. [Concomitant]
     Active Substance: ALPRAZOLAM
  29. OMEGA 3 [Concomitant]
     Active Substance: OMEGA-3 FATTY ACIDS
     Route: 048
     Dates: start: 20130403
  30. DICLOFENAC [Concomitant]
     Active Substance: DICLOFENAC

REACTIONS (18)
  - Cerebrovascular accident [Unknown]
  - Spinal osteoarthritis [Unknown]
  - Multiple fractures [Unknown]
  - Intervertebral disc degeneration [Unknown]
  - Pain in extremity [Unknown]
  - Hyperlipidaemia [Unknown]
  - Vitamin D deficiency [Unknown]
  - Arthropathy [Unknown]
  - Neck pain [Unknown]
  - Osteopenia [Unknown]
  - Intervertebral disc disorder [Unknown]
  - Tobacco abuse [Unknown]
  - Hypertension [Unknown]
  - Osteoporosis [Unknown]
  - Cervical radiculopathy [Unknown]
  - Bone pain [Unknown]
  - Back pain [Unknown]
  - Calcium deficiency [Unknown]

NARRATIVE: CASE EVENT DATE: 2010
